FAERS Safety Report 11857711 (Version 1)
Quarter: 2015Q4

REPORT INFORMATION
  Report Type: Spontaneous
  Country: US (occurrence: None)
  Receive Date: 20151221
  Receipt Date: 20151221
  Transmission Date: 20160305
  Serious: No
  Sender: FDA-Public Use
  Company Number: None

PATIENT
  Age: 34 Year
  Sex: Female

DRUGS (2)
  1. MAKENA [Suspect]
     Active Substance: HYDROXYPROGESTERONE CAPROATE
     Indication: PREMATURE LABOUR
     Dosage: Q 7 DAYS
     Route: 030
     Dates: start: 20151118
  2. PRENATAL TABLET [Concomitant]
     Active Substance: VITAMINS

REACTIONS (1)
  - Vomiting [None]

NARRATIVE: CASE EVENT DATE: 20151118
